FAERS Safety Report 5210968-1 (Version None)
Quarter: 2006Q4

REPORT INFORMATION
  Report Type: 
  Country: None (occurrence: None)
  Receive Date: 20061130
  Receipt Date: 20060726
  Transmission Date: 20070319
  Serious: Yes (Disabling, Other)
  Sender: FDA-Public Use
  Company Number: WAES 0607USA05205

PATIENT
  Age: 77 Year
  Sex: Female
  Weight: 48.5349 kg

DRUGS (9)
  1. FOSAMAX [Suspect]
     Indication: OSTEOPOROSIS
     Dosage: 70 MG/WKY/PO
     Route: 048
     Dates: start: 20010911, end: 20060725
  2. CLARITIN [Concomitant]
  3. ICAPS [Concomitant]
  4. KLOR-CON [Concomitant]
  5. LIPITOR [Concomitant]
  6. TUMS [Concomitant]
  7. ATENOLOL [Concomitant]
  8. CALCIUM [Concomitant]
  9. TRIAMTERENE AND HYDROCHLOROTHIAZIDE [Concomitant]

REACTIONS (2)
  - OSTEONECROSIS [None]
  - PAIN IN JAW [None]
